FAERS Safety Report 21267733 (Version 2)
Quarter: 2022Q3

REPORT INFORMATION
  Report Type: Spontaneous
  Country: AU (occurrence: AU)
  Receive Date: 20220829
  Receipt Date: 20220902
  Transmission Date: 20221027
  Serious: Yes (Other)
  Sender: FDA-Public Use
  Company Number: AU-SA-SAC20220825001296

PATIENT
  Sex: Male

DRUGS (5)
  1. LIBTAYO [Suspect]
     Active Substance: CEMIPLIMAB-RWLC
     Indication: Squamous cell carcinoma of skin
     Dosage: 350 MG, Q3W
     Route: 042
     Dates: start: 20220708
  2. RAMIPRIL [Concomitant]
     Active Substance: RAMIPRIL
     Indication: Blood pressure measurement
     Dosage: UNK
     Route: 048
  3. METOPROLOL [Concomitant]
     Active Substance: METOPROLOL
     Indication: Anticoagulant therapy
     Dosage: UNK
     Route: 065
  4. METOPROLOL [Concomitant]
     Active Substance: METOPROLOL
     Indication: Blood pressure measurement
  5. RIVAROXABAN [Concomitant]
     Active Substance: RIVAROXABAN
     Indication: Anticoagulant therapy
     Dosage: UNK
     Route: 065
     Dates: start: 2022

REACTIONS (7)
  - Hepatitis [Recovered/Resolved]
  - Ocular myasthenia [Recovered/Resolved with Sequelae]
  - Nephritis [Recovered/Resolved]
  - Eyelid ptosis [Not Recovered/Not Resolved]
  - Transaminases abnormal [Unknown]
  - Myositis [Recovered/Resolved with Sequelae]
  - Immune system disorder [Unknown]

NARRATIVE: CASE EVENT DATE: 20220816
